FAERS Safety Report 4570154-5 (Version None)
Quarter: 2005Q1

REPORT INFORMATION
  Report Type: 
  Country: None (occurrence: None)
  Receive Date: 20050201
  Receipt Date: 20050127
  Transmission Date: 20050727
  Serious: Yes (Other)
  Sender: FDA-Public Use
  Company Number: 004004

PATIENT
  Sex: Female

DRUGS (4)
  1. MEDROXYPROGESTERONE ACETATE [Suspect]
     Dates: start: 19950201, end: 19960701
  2. PREMPRO [Suspect]
     Dates: start: 19950201, end: 19960701
  3. PROVERA [Suspect]
     Dates: start: 19950201, end: 19960701
  4. PREMPRO [Suspect]
     Dates: start: 19960701, end: 20020401

REACTIONS (1)
  - OVARIAN EPITHELIAL CANCER STAGE III [None]
